FAERS Safety Report 13700997 (Version 4)
Quarter: 2024Q3

REPORT INFORMATION
  Report Type: Spontaneous
  Country: NO (occurrence: NO)
  Receive Date: 20170629
  Receipt Date: 20240718
  Transmission Date: 20241016
  Serious: Yes (Other)
  Sender: AMGEN
  Company Number: NO-HORIZON-PRO-0033-2017

PATIENT
  Age: 21 Year
  Sex: Male

DRUGS (6)
  1. PROCYSBI [Suspect]
     Active Substance: CYSTEAMINE BITARTRATE
     Indication: Cystinosis
     Dosage: 675 MILLIGRAM, BID
     Route: 065
  2. CYSTEAMINE [Concomitant]
     Active Substance: CYSTEAMINE
  3. ENALAPRIL [Concomitant]
     Active Substance: ENALAPRIL
  4. TACROLIMUS [Concomitant]
     Active Substance: TACROLIMUS
  5. LEVOTHYROXINE [Concomitant]
     Active Substance: LEVOTHYROXINE\LEVOTHYROXINE SODIUM
  6. MYCOPHENOLATE MOFETIL [Concomitant]
     Active Substance: MYCOPHENOLATE MOFETIL

REACTIONS (3)
  - Fibrosing colonopathy [Unknown]
  - Anal incontinence [Unknown]
  - Diarrhoea [Unknown]
